FAERS Safety Report 14738273 (Version 3)
Quarter: 2018Q2

REPORT INFORMATION
  Report Type: Spontaneous
  Country: JP (occurrence: JP)
  Receive Date: 20180409
  Receipt Date: 20180530
  Transmission Date: 20180711
  Serious: Yes (Other)
  Sender: FDA-Public Use
  Company Number: JP-FERRINGPH-2018FE01672

PATIENT

DRUGS (6)
  1. TROXSIN [Concomitant]
     Active Substance: TROXIPIDE
     Dosage: UNK
     Dates: start: 20171205
  2. GONAX [Suspect]
     Active Substance: DEGARELIX
     Indication: PROSTATE CANCER
     Dosage: 80 MG, MONTHLY
     Route: 058
     Dates: start: 20180105, end: 20180302
  3. CELECOX [Concomitant]
     Active Substance: CELECOXIB
     Indication: ANALGESIC THERAPY
     Dosage: 100 MG, 2 TIMES DAILY
     Route: 048
     Dates: start: 20171205
  4. CELECOX [Concomitant]
     Active Substance: CELECOXIB
     Indication: BACK PAIN
  5. BICALUTAMIDE. [Concomitant]
     Active Substance: BICALUTAMIDE
     Dosage: UNK
     Route: 048
     Dates: start: 20171205
  6. GONAX [Suspect]
     Active Substance: DEGARELIX
     Dosage: 240 MG, ONCE/SINGLE
     Route: 058
     Dates: start: 20171206, end: 20171206

REACTIONS (3)
  - Rash erythematous [Recovered/Resolved]
  - Injection site pain [Recovering/Resolving]
  - Injection site pain [Unknown]

NARRATIVE: CASE EVENT DATE: 20180202
